FAERS Safety Report 7052758-3 (Version None)
Quarter: 2010Q4

REPORT INFORMATION
  Report Type: 
  Country: None (occurrence: None)
  Receive Date: 20101012
  Receipt Date: 20101004
  Transmission Date: 20110411
  Serious: Yes (Hospitalization)
  Sender: FDA-Public Use
  Company Number: 2010SP004854

PATIENT
  Age: 40 Year
  Sex: Female
  Weight: 90.7194 kg

DRUGS (3)
  1. NUVARING [Suspect]
     Indication: MENORRHAGIA
     Dates: start: 20080401, end: 20080701
  2. NUVARING [Suspect]
     Indication: PREMENSTRUAL SYNDROME
     Dates: start: 20080401, end: 20080701
  3. ADVIL [Concomitant]

REACTIONS (8)
  - AMNESIA [None]
  - DEEP VEIN THROMBOSIS [None]
  - HAEMOPTYSIS [None]
  - HEADACHE [None]
  - MULTIPLE INJURIES [None]
  - MUSCLE SPASMS [None]
  - PULMONARY EMBOLISM [None]
  - THYROID DISORDER [None]
